FAERS Safety Report 23960518 (Version 1)
Quarter: 2024Q2

REPORT INFORMATION
  Report Type: Spontaneous
  Country: NL (occurrence: NL)
  Receive Date: 20240611
  Receipt Date: 20240611
  Transmission Date: 20240716
  Serious: Yes (Hospitalization, Other)
  Sender: FDA-Public Use
  Company Number: NL-SUN PHARMACEUTICAL INDUSTRIES LTD-2024R1-450187

PATIENT
  Age: 24 Year
  Sex: Male
  Weight: 44 kg

DRUGS (8)
  1. FENTANYL [Interacting]
     Active Substance: FENTANYL\FENTANYL CITRATE
     Indication: Muscle spasticity
     Route: 065
  2. PIRITRAMIDE [Interacting]
     Active Substance: PIRITRAMIDE
     Indication: Muscle spasticity
     Dosage: 3 MILLIGRAM
     Route: 042
  3. PIRITRAMIDE [Interacting]
     Active Substance: PIRITRAMIDE
     Dosage: 7 MILLIGRAM
     Route: 058
  4. BACLOFEN [Interacting]
     Active Substance: BACLOFEN
     Indication: Muscle spasticity
     Dosage: 672 MICROGRAM/DAY
     Route: 065
  5. BACLOFEN [Interacting]
     Active Substance: BACLOFEN
     Dosage: 550 MICROGRAM/DAY
     Route: 065
  6. ACETAMINOPHEN [Suspect]
     Active Substance: ACETAMINOPHEN
     Indication: Muscle spasticity
     Route: 065
  7. DICLOFENAC [Suspect]
     Active Substance: DICLOFENAC
     Indication: Muscle spasticity
     Route: 065
  8. TRAMADOL [Interacting]
     Active Substance: TRAMADOL\TRAMADOL HYDROCHLORIDE
     Indication: Muscle spasticity
     Dosage: 100 MILLIGRAM TWICE DAILY
     Route: 065

REACTIONS (2)
  - Drug interaction [Unknown]
  - Urosepsis [Unknown]
